FAERS Safety Report 19819626 (Version 1)
Quarter: 2021Q3

REPORT INFORMATION
  Report Type: Spontaneous
  Country: CA (occurrence: CA)
  Receive Date: 20210913
  Receipt Date: 20210913
  Transmission Date: 20211014
  Serious: Yes (Life-Threatening, Hospitalization, Other)
  Sender: FDA-Public Use
  Company Number: CA-GRANULES-CA-2021GRALIT00474

PATIENT
  Age: 20 Year
  Sex: Female
  Weight: 68 kg

DRUGS (9)
  1. ACETYLCYSTEIN [Interacting]
     Active Substance: ACETYLCYSTEINE
     Indication: SUPPORTIVE CARE
     Route: 042
  2. IBUPROFEN. [Suspect]
     Active Substance: IBUPROFEN
     Indication: PRODUCT USED FOR UNKNOWN INDICATION
     Route: 048
  3. OXYCODONE [Concomitant]
     Active Substance: OXYCODONE
     Indication: PRODUCT USED FOR UNKNOWN INDICATION
     Route: 048
  4. NOREPINEPHRINE. [Interacting]
     Active Substance: NOREPINEPHRINE
     Indication: SUPPORTIVE CARE
     Dosage: 0.3MCG/KG/MIN
     Route: 065
  5. ACETYLCYSTEIN [Interacting]
     Active Substance: ACETYLCYSTEINE
     Dosage: 15MG/KG/HR
     Route: 042
  6. EPINEPHRINE. [Interacting]
     Active Substance: EPINEPHRINE
     Indication: SUPPORTIVE CARE
     Dosage: 0.2MCG/KG/MIN
     Route: 065
  7. FOMEPIZOLE. [Interacting]
     Active Substance: FOMEPIZOLE
     Indication: SUPPORTIVE CARE
     Route: 065
  8. ACETAMINOPHEN. [Suspect]
     Active Substance: ACETAMINOPHEN
     Indication: PRODUCT USED FOR UNKNOWN INDICATION
     Route: 048
  9. SODIUM BICARBONATE. [Interacting]
     Active Substance: SODIUM BICARBONATE
     Indication: SUPPORTIVE CARE
     Route: 042

REACTIONS (7)
  - Coma [Recovered/Resolved]
  - Methaemoglobinaemia [Recovered/Resolved]
  - Metabolic acidosis [Recovered/Resolved]
  - Shock [Recovered/Resolved]
  - Hyperkaliuria [Recovered/Resolved]
  - Overdose [Recovered/Resolved]
  - Toxicity to various agents [Recovered/Resolved]
